FAERS Safety Report 4778729-5 (Version None)
Quarter: 2005Q3

REPORT INFORMATION
  Report Type: 
  Country: None (occurrence: None)
  Receive Date: 20050922
  Receipt Date: 20050912
  Transmission Date: 20060218
  Serious: Yes (Life-Threatening, Hospitalization)
  Sender: FDA-Public Use
  Company Number: 200510573BNE

PATIENT
  Age: 63 Year
  Sex: Male

DRUGS (1)
  1. ASPIRIN [Suspect]
     Indication: SELF-MEDICATION

REACTIONS (5)
  - DUODENAL ULCER HAEMORRHAGE [None]
  - HAEMOGLOBIN DECREASED [None]
  - HYPOVOLAEMIA [None]
  - MELAENA [None]
  - SELF-MEDICATION [None]
